FAERS Safety Report 4325516-8 (Version None)
Quarter: 2004Q1

REPORT INFORMATION
  Report Type: 
  Country: None (occurrence: None)
  Receive Date: 20040324
  Receipt Date: 20040312
  Transmission Date: 20041129
  Serious: Yes (Other)
  Sender: FDA-Public Use
  Company Number: 2004203335FR

PATIENT
  Age: 62 Year
  Sex: Female

DRUGS (1)
  1. MEDROL [Suspect]
     Indication: SCAN
     Dosage: 16 MG, ORAL
     Route: 048

REACTIONS (1)
  - ANGIONEUROTIC OEDEMA [None]
